FAERS Safety Report 19148168 (Version 1)
Quarter: 2021Q2

REPORT INFORMATION
  Report Type: Report from Study
  Country: FR (occurrence: FR)
  Receive Date: 20210416
  Receipt Date: 20210416
  Transmission Date: 20210717
  Serious: Yes (Other)
  Sender: FDA-Public Use
  Company Number: FR-TAKEDA-2021TUS022913

PATIENT

DRUGS (1)
  1. HUMAN COAGULATION FACTOR VIII (PLASMA) UNSPECIFIED [Suspect]
     Active Substance: ANTIHEMOPHILIC FACTOR HUMAN
     Indication: FACTOR VIII DEFICIENCY
     Route: 065

REACTIONS (1)
  - Anti factor VIII antibody positive [Unknown]
